FAERS Safety Report 7183753-1 (Version None)
Quarter: 2010Q4

REPORT INFORMATION
  Report Type: 
  Country: None (occurrence: None)
  Receive Date: 20101222
  Receipt Date: 20101213
  Transmission Date: 20110411
  Serious: Yes (Hospitalization, Other)
  Sender: FDA-Public Use
  Company Number: US-NOVOPROD-320001

PATIENT
  Sex: Female
  Weight: 81.179 kg

DRUGS (6)
  1. VICTOZA [Suspect]
     Indication: TYPE 2 DIABETES MELLITUS
     Dosage: 0.6 MG, QD
     Route: 058
     Dates: start: 20101130
  2. VICTOZA [Suspect]
     Indication: METABOLIC SYNDROME
     Dosage: 1.2 MG, QD
     Route: 058
     Dates: end: 20101209
  3. BENAZEPRIL [Concomitant]
     Indication: HYPERTENSION
     Dosage: 20 MG, QD
     Route: 048
  4. CITALOPRAM [Concomitant]
     Indication: DEPRESSION
     Dosage: 20 MG, QD
     Route: 048
  5. TRAZODONE HCL [Concomitant]
     Indication: DEPRESSION
     Dosage: 100 MG, QD
     Route: 048
  6. METFORMIN [Concomitant]
     Indication: TYPE 2 DIABETES MELLITUS
     Dosage: 500 MG, QD
     Route: 048

REACTIONS (2)
  - GALLBLADDER POLYP [None]
  - PANCREATITIS [None]
